FAERS Safety Report 13485475 (Version 1)
Quarter: 2017Q2

REPORT INFORMATION
  Report Type: Spontaneous
  Country: HK (occurrence: HK)
  Receive Date: 20170426
  Receipt Date: 20170426
  Transmission Date: 20170830
  Serious: Yes (Hospitalization, Other)
  Sender: FDA-Public Use
  Company Number: HK-MYLANLABS-2017M1025282

PATIENT

DRUGS (1)
  1. METHADONE [Suspect]
     Active Substance: METHADONE HYDROCHLORIDE
     Indication: INTENTIONAL OVERDOSE
     Dosage: EQUIVALENT TO 18.2MG/KG
     Route: 048

REACTIONS (5)
  - Depressed level of consciousness [Recovering/Resolving]
  - Hypoventilation [Unknown]
  - Intentional overdose [Unknown]
  - Hypoglycaemia [Unknown]
  - Sinus tachycardia [Unknown]
